FAERS Safety Report 9409001 (Version 1)
Quarter: 2013Q3

REPORT INFORMATION
  Report Type: Spontaneous
  Country: IN (occurrence: IN)
  Receive Date: 20130719
  Receipt Date: 20130719
  Transmission Date: 20140515
  Serious: Yes (Death)
  Sender: FDA-Public Use
  Company Number: IN-MERCK-1307IND010540

PATIENT
  Sex: 0

DRUGS (2)
  1. INTRONA [Suspect]
     Dosage: 18 MILLION IU, UNK
  2. REBETOL [Suspect]

REACTIONS (1)
  - Death [Fatal]
